FAERS Safety Report 6740806-7 (Version None)
Quarter: 2010Q2

REPORT INFORMATION
  Report Type: 
  Country: None (occurrence: None)
  Receive Date: 20100525
  Receipt Date: 20100525
  Transmission Date: 20101027
  Serious: Yes (Hospitalization)
  Sender: FDA-Public Use
  Company Number: None

PATIENT
  Age: 78 Year
  Sex: Male
  Weight: 93 kg

DRUGS (2)
  1. TERAZOSIN HCL [Suspect]
     Indication: BENIGN PROSTATIC HYPERPLASIA
     Dosage: 2 MG HS PO
     Route: 048
     Dates: start: 20000703, end: 20100118
  2. LISINOPRIL [Suspect]
     Indication: HYPERTENSION
     Dosage: 2.5 MG EVERY DAY PO
     Route: 048
     Dates: start: 20050907, end: 20100118

REACTIONS (8)
  - CONFUSIONAL STATE [None]
  - FALL [None]
  - HYPERHIDROSIS [None]
  - HYPOTENSION [None]
  - RADIUS FRACTURE [None]
  - RIB FRACTURE [None]
  - SKIN LACERATION [None]
  - SYNCOPE [None]
